FAERS Safety Report 9331137 (Version 2)
Quarter: 2014Q2

REPORT INFORMATION
  Report Type: Spontaneous
  Country: US (occurrence: US)
  Receive Date: 20130605
  Receipt Date: 20140416
  Transmission Date: 20141212
  Serious: Yes (Death)
  Sender: FDA-Public Use
  Company Number: US-B.I. PHARMACEUTICALS,INC./RIDGEFIELD-2013-BI-15626BP

PATIENT
  Sex: Female
  Weight: 65.77 kg

DRUGS (11)
  1. PRADAXA [Suspect]
     Indication: CEREBROVASCULAR ACCIDENT PROPHYLAXIS
     Route: 065
     Dates: start: 201104, end: 201108
  2. PRADAXA [Suspect]
     Indication: THROMBOSIS PROPHYLAXIS
  3. MULTAQ [Concomitant]
     Route: 065
  4. NORCO [Concomitant]
     Route: 065
  5. SERTRALINE [Concomitant]
     Route: 065
  6. BYSTOLIC [Concomitant]
     Route: 065
  7. TYLENOL PM [Concomitant]
     Route: 065
  8. AMIODARONE [Concomitant]
     Route: 065
  9. FERROUS SULFATE [Concomitant]
     Route: 065
  10. METOPROLOL [Concomitant]
     Route: 065
  11. PANTOPRAZOLE [Concomitant]
     Route: 065

REACTIONS (1)
  - Gastrointestinal haemorrhage [Fatal]
